FAERS Safety Report 13019595 (Version 2)
Quarter: 2017Q3

REPORT INFORMATION
  Report Type: Spontaneous
  Country: US (occurrence: US)
  Receive Date: 20161212
  Receipt Date: 20170814
  Transmission Date: 20171127
  Serious: No
  Sender: FDA-Public Use
  Company Number: US-ROCHE-1827951

PATIENT
  Age: 30 Year
  Sex: Female
  Weight: 47.62 kg

DRUGS (2)
  1. ACTEMRA [Suspect]
     Active Substance: TOCILIZUMAB
     Indication: RHEUMATOID ARTHRITIS
     Route: 058
  2. ACTEMRA [Suspect]
     Active Substance: TOCILIZUMAB
     Route: 058

REACTIONS (3)
  - Pain [Unknown]
  - Drug ineffective [Unknown]
  - Nasopharyngitis [Unknown]
